FAERS Safety Report 10470157 (Version 2)
Quarter: 2014Q3

REPORT INFORMATION
  Report Type: Report from Study
  Country: ES (occurrence: ES)
  Receive Date: 20140923
  Receipt Date: 20140923
  Transmission Date: 20150326
  Serious: Yes (Hospitalization, Other)
  Sender: FDA-Public Use
  Company Number: ES-MPIJNJ-2014JNJ000624

PATIENT

DRUGS (11)
  1. INALADUO [Concomitant]
     Active Substance: FLUTICASONE PROPIONATE\SALMETEROL XINAFOATE
  2. LYRICA [Concomitant]
     Active Substance: PREGABALIN
  3. FUROSEMIDE. [Concomitant]
     Active Substance: FUROSEMIDE
  4. ACICLOVIR [Concomitant]
     Active Substance: ACYCLOVIR
  5. VELCADE [Suspect]
     Active Substance: BORTEZOMIB
     Indication: PLASMA CELL MYELOMA
     Dosage: 2.05 MG, UNK
     Route: 065
     Dates: start: 20130125, end: 20130506
  6. COZAAR [Concomitant]
     Active Substance: LOSARTAN POTASSIUM
  7. DIGOXIN. [Concomitant]
     Active Substance: DIGOXIN
  8. CA [Concomitant]
  9. HIDROXIL B12 B6 B1 [Suspect]
     Active Substance: HYDROXOCOBALAMIN\PYRIDOXINE HYDROCHLORIDE\THIAMINE HYDROCHLORIDE
  10. ANAGASTRA [Concomitant]
     Active Substance: PANTOPRAZOLE SODIUM
  11. SINTROM [Concomitant]
     Active Substance: ACENOCOUMAROL

REACTIONS (6)
  - Hypertrophic cardiomyopathy [Unknown]
  - Pyrexia [None]
  - Neuropathy peripheral [Recovered/Resolved]
  - Diastolic dysfunction [None]
  - Cardiac amyloidosis [None]
  - Acute pulmonary oedema [Recovered/Resolved]

NARRATIVE: CASE EVENT DATE: 20130410
